FAERS Safety Report 12487127 (Version 3)
Quarter: 2016Q3

REPORT INFORMATION
  Report Type: Spontaneous
  Country: JP (occurrence: JP)
  Receive Date: 20160622
  Receipt Date: 20160825
  Transmission Date: 20161109
  Serious: Yes (Death, Hospitalization)
  Sender: FDA-Public Use
  Company Number: JP-ROCHE-1779549

PATIENT
  Age: 83 Year
  Sex: Male

DRUGS (6)
  1. ALLELOCK [Concomitant]
     Active Substance: OLOPATADINE HYDROCHLORIDE
     Indication: RHINITIS ALLERGIC
     Route: 048
     Dates: start: 20121104, end: 20150717
  2. QVAR [Concomitant]
     Active Substance: BECLOMETHASONE DIPROPIONATE
     Indication: ASTHMA
     Route: 055
     Dates: start: 20111208, end: 20150731
  3. XOLAIR [Suspect]
     Active Substance: OMALIZUMAB
     Indication: ASTHMA
     Route: 058
     Dates: start: 20130912, end: 20140213
  4. MICARDIS [Concomitant]
     Active Substance: TELMISARTAN
     Indication: HYPERTENSION
     Route: 048
     Dates: start: 20130914, end: 20150717
  5. BAYASPIRIN [Concomitant]
     Active Substance: ASPIRIN
     Indication: ANGINA PECTORIS
     Route: 048
     Dates: start: 20111208, end: 20150731
  6. GASTER [Concomitant]
     Active Substance: FAMOTIDINE
     Indication: CHRONIC GASTRITIS
     Route: 048
     Dates: start: 20111208, end: 20150731

REACTIONS (5)
  - Depressed level of consciousness [Unknown]
  - Pneumonia [Recovered/Resolved]
  - Cerebral infarction [Fatal]
  - Gastric cancer stage IV [Fatal]
  - Anaemia [Unknown]

NARRATIVE: CASE EVENT DATE: 20150625
